FAERS Safety Report 17660210 (Version 1)
Quarter: 2020Q2

REPORT INFORMATION
  Report Type: Spontaneous
  Country: US (occurrence: US)
  Receive Date: 20200413
  Receipt Date: 20200413
  Transmission Date: 20200713
  Serious: No
  Sender: FDA-Public Use
  Company Number: US-MYLANLABS-2020M1034384

PATIENT
  Age: 28 Year
  Sex: Female
  Weight: 86 kg

DRUGS (1)
  1. XULANE [Suspect]
     Active Substance: ETHINYL ESTRADIOL\NORELGESTROMIN
     Indication: CONTRACEPTION
     Dosage: 150/35 MICROGRAM, QD
     Route: 062
     Dates: start: 202002

REACTIONS (2)
  - Menstrual disorder [Recovered/Resolved]
  - Wrong technique in product usage process [Not Recovered/Not Resolved]
